FAERS Safety Report 17026824 (Version 8)
Quarter: 2020Q2

REPORT INFORMATION
  Report Type: Spontaneous
  Country: AU (occurrence: AU)
  Receive Date: 20191113
  Receipt Date: 20200513
  Transmission Date: 20200713
  Serious: Yes (Life-Threatening, Hospitalization, Disabling, Other)
  Sender: FDA-Public Use
  Company Number: AU-PFIZER INC-2019487437

PATIENT
  Age: 52 Year
  Sex: Female
  Weight: 53 kg

DRUGS (7)
  1. CELEBREX [Suspect]
     Active Substance: CELECOXIB
     Indication: ARTHRALGIA
  2. DEPO-NISOLONE [Suspect]
     Active Substance: METHYLPREDNISOLONE ACETATE
     Indication: KNEE OPERATION
     Dosage: 40 MG/ML, UNK
     Route: 014
     Dates: start: 20150421, end: 20150421
  3. NAROPEINE [Suspect]
     Active Substance: ROPIVACAINE HYDROCHLORIDE
     Dosage: 20 ML, UNK
     Route: 014
     Dates: start: 20150421, end: 20150421
  4. CELEBREX [Suspect]
     Active Substance: CELECOXIB
     Indication: INFLAMMATION
     Dosage: 200 MG, UNK
     Route: 048
     Dates: start: 20150421, end: 20150421
  5. DEPO-MEDROL [Suspect]
     Active Substance: METHYLPREDNISOLONE ACETATE
  6. INSULIN [Concomitant]
     Active Substance: INSULIN NOS
     Indication: TYPE 1 DIABETES MELLITUS
     Dosage: UNK
  7. PANADOL [Concomitant]
     Active Substance: ACETAMINOPHEN
     Indication: PAIN
     Dosage: 1-2 TABLETS; 4-6 HOURLY AS REQUIRED

REACTIONS (14)
  - Haemorrhage [Unknown]
  - Malaise [Unknown]
  - Product prescribing error [Unknown]
  - Headache [Unknown]
  - Necrotising fasciitis [Not Recovered/Not Resolved]
  - Cellulitis [Not Recovered/Not Resolved]
  - Myositis [Not Recovered/Not Resolved]
  - Clostridial infection [Not Recovered/Not Resolved]
  - Blood glucose increased [Unknown]
  - Gastric disorder [Unknown]
  - Insulin resistance [Unknown]
  - Sepsis [Not Recovered/Not Resolved]
  - Periarthritis [Unknown]
  - Arthritis bacterial [Unknown]

NARRATIVE: CASE EVENT DATE: 20150424
